FAERS Safety Report 8354289-7 (Version None)
Quarter: 2012Q2

REPORT INFORMATION
  Report Type: 
  Country: None (occurrence: None)
  Receive Date: 20120511
  Receipt Date: 20120430
  Transmission Date: 20120825
  Serious: Yes (Other)
  Sender: FDA-Public Use
  Company Number: US-JNJFOC-20120401247

PATIENT
  Sex: Female

DRUGS (5)
  1. CYMBALTA [Concomitant]
     Indication: DEPRESSION
     Route: 065
  2. SEROQUEL [Concomitant]
     Indication: SLEEP DISORDER
     Route: 065
  3. REMICADE [Suspect]
     Indication: PRODUCT USED FOR UNKNOWN INDICATION
     Route: 042
     Dates: end: 20091229
  4. XOPENEX [Concomitant]
     Indication: ASTHMA
     Route: 065
  5. LORAZEPAM [Concomitant]
     Indication: ANXIETY
     Route: 065

REACTIONS (8)
  - ECZEMA [None]
  - SINUSITIS [None]
  - PAIN [None]
  - ONYCHOMADESIS [None]
  - ALOPECIA [None]
  - PSORIATIC ARTHROPATHY [None]
  - EAR INFECTION [None]
  - PSORIASIS [None]
